FAERS Safety Report 5376382-3 (Version None)
Quarter: 2007Q2

REPORT INFORMATION
  Report Type: 
  Country: None (occurrence: None)
  Receive Date: 20070627
  Receipt Date: 20061009
  Transmission Date: 20071010
  Serious: Yes (Other)
  Sender: FDA-Public Use
  Company Number: 2006114993

PATIENT
  Age: 39 Year
  Sex: Male
  Weight: 131.5431 kg

DRUGS (2)
  1. NICOTROL [Suspect]
     Indication: SMOKING CESSATION THERAPY
     Dosage: REDUCED TO 6 CARTRIDGES PER DAY, INHALATION
     Route: 055
     Dates: start: 20060531
  2. RISPERIDONE [Concomitant]

REACTIONS (1)
  - DEPENDENCE [None]
